FAERS Safety Report 25223234 (Version 1)
Quarter: 2025Q2

REPORT INFORMATION
  Report Type: Spontaneous
  Country: BR (occurrence: BR)
  Receive Date: 20250422
  Receipt Date: 20250422
  Transmission Date: 20250716
  Serious: Yes (Other)
  Sender: ABBVIE
  Company Number: BR-ABBVIE-6233661

PATIENT
  Age: 81 Year
  Sex: Female
  Weight: 38 kg

DRUGS (3)
  1. ALPHAGAN P [Suspect]
     Active Substance: BRIMONIDINE TARTRATE
     Indication: Ocular discomfort
     Dosage: VIAL. W/ 10 ML
     Route: 047
     Dates: start: 202502
  2. HYALURONATE SODIUM\TREHALOSE [Concomitant]
     Active Substance: HYALURONATE SODIUM\TREHALOSE
     Indication: Ocular discomfort
  3. LUMIGAN [Concomitant]
     Active Substance: BIMATOPROST
     Indication: Intraocular pressure test abnormal
     Route: 047

REACTIONS (7)
  - Blindness [Unknown]
  - Eye pain [Unknown]
  - Eye swelling [Recovered/Resolved]
  - Ocular hyperaemia [Recovered/Resolved]
  - Ocular hyperaemia [Unknown]
  - Eye inflammation [Not Recovered/Not Resolved]
  - Eye swelling [Unknown]

NARRATIVE: CASE EVENT DATE: 20250101
